FAERS Safety Report 12538785 (Version 3)
Quarter: 2016Q3

REPORT INFORMATION
  Report Type: Report from Study
  Country: CA (occurrence: CA)
  Receive Date: 20160708
  Receipt Date: 20160718
  Transmission Date: 20161109
  Serious: Yes (Hospitalization, Other)
  Sender: FDA-Public Use
  Company Number: CA-ROCHE-1777659

PATIENT
  Age: 77 Year
  Sex: Male
  Weight: 86 kg

DRUGS (16)
  1. METAMUCIL [Concomitant]
     Active Substance: PLANTAGO SEED
  2. CRESTOR [Concomitant]
     Active Substance: ROSUVASTATIN CALCIUM
     Indication: HEPATIC CIRRHOSIS
  3. ESBRIET [Suspect]
     Active Substance: PIRFENIDONE
     Indication: IDIOPATHIC PULMONARY FIBROSIS
     Route: 048
     Dates: start: 20150707
  4. ASPIRIN. [Concomitant]
     Active Substance: ASPIRIN
  5. SLOW K [Concomitant]
     Active Substance: POTASSIUM CHLORIDE
     Indication: HEPATIC CIRRHOSIS
  6. FOLIC ACID. [Concomitant]
     Active Substance: FOLIC ACID
  7. ESBRIET [Suspect]
     Active Substance: PIRFENIDONE
     Route: 048
     Dates: start: 20150714
  8. ESBRIET [Suspect]
     Active Substance: PIRFENIDONE
     Route: 048
     Dates: start: 20150721, end: 201606
  9. RABEPRAZOLE [Concomitant]
     Active Substance: RABEPRAZOLE
  10. ALLOPURINOL. [Concomitant]
     Active Substance: ALLOPURINOL
     Indication: HEPATIC CIRRHOSIS
  11. FUROSEMIDE. [Suspect]
     Active Substance: FUROSEMIDE
     Indication: PRODUCT USED FOR UNKNOWN INDICATION
     Route: 065
  12. VITAMIN B12 [Concomitant]
     Active Substance: CYANOCOBALAMIN
  13. ADVAIR HFA [Concomitant]
     Active Substance: FLUTICASONE PROPIONATE\SALMETEROL XINAFOATE
  14. ROSUVASTATIN. [Concomitant]
     Active Substance: ROSUVASTATIN
  15. PARIET [Concomitant]
     Active Substance: RABEPRAZOLE SODIUM
     Indication: HEPATIC CIRRHOSIS
  16. NADOLOL. [Concomitant]
     Active Substance: NADOLOL

REACTIONS (2)
  - Pneumonia [Not Recovered/Not Resolved]
  - Hepatic cirrhosis [Unknown]

NARRATIVE: CASE EVENT DATE: 20160605
